FAERS Safety Report 19971590 (Version 1)
Quarter: 2021Q4

REPORT INFORMATION
  Report Type: Spontaneous
  Country: US (occurrence: US)
  Receive Date: 20211019
  Receipt Date: 20211019
  Transmission Date: 20220304
  Serious: No
  Sender: FDA-Public Use
  Company Number: US-TEVA-2021-US-1967363

PATIENT
  Age: 39 Year
  Sex: Female
  Weight: 97.5 kg

DRUGS (5)
  1. DEXAMETHASONE [Suspect]
     Active Substance: DEXAMETHASONE
     Indication: Breast cancer female
     Dosage: 8 MILLIGRAM DAILY; DOSE: 8 MG (2 X 4MG TABS)
     Route: 048
  2. ZOVIRAX [Concomitant]
     Active Substance: ACYCLOVIR
     Dosage: DOSE: 400 MG
     Route: 065
  3. FERROUS SULFATE [Concomitant]
     Active Substance: FERROUS SULFATE
     Route: 048
  4. Multivitamin-minerals [Concomitant]
     Route: 048
  5. TYLENOL [Concomitant]
     Active Substance: ACETAMINOPHEN
     Dosage: DOSE: 2 TABLETS BY MOUTH EVERY FOUR HOURS AS NEEDED
     Route: 048

REACTIONS (1)
  - Insomnia [Unknown]
